FAERS Safety Report 16848284 (Version 2)
Quarter: 2019Q4

REPORT INFORMATION
  Report Type: Spontaneous
  Country: CA (occurrence: CA)
  Receive Date: 20190925
  Receipt Date: 20191201
  Transmission Date: 20200122
  Serious: No
  Sender: FDA-Public Use
  Company Number: CA-AMGEN-CANSP2019156482

PATIENT
  Age: 66 Year
  Sex: Male
  Weight: 95 kg

DRUGS (5)
  1. ENBREL [Suspect]
     Active Substance: ETANERCEPT
     Indication: PRODUCT USED FOR UNKNOWN INDICATION
     Dosage: UNK
     Route: 065
  2. XELJANZ [Suspect]
     Active Substance: TOFACITINIB CITRATE
     Indication: PRODUCT USED FOR UNKNOWN INDICATION
     Dosage: UNK
     Route: 065
  3. PLAQUENIL [Suspect]
     Active Substance: HYDROXYCHLOROQUINE SULFATE
     Indication: PRODUCT USED FOR UNKNOWN INDICATION
     Dosage: 400 MILLIGRAM, 1X/DAY
     Route: 065
  4. METHOTREXATE SODIUM. [Suspect]
     Active Substance: METHOTREXATE SODIUM
     Indication: PRODUCT USED FOR UNKNOWN INDICATION
     Dosage: 15 MILLIGRAM, WEEKLY (2.5 MG TABS (TABLETS), 6 TABS)
     Route: 048
  5. SULFASALAZINE. [Suspect]
     Active Substance: SULFASALAZINE
     Indication: PRODUCT USED FOR UNKNOWN INDICATION
     Dosage: 500 MILLIGRAM, 2X/DAY (ENTERIC COATED TABLET)
     Route: 048

REACTIONS (5)
  - Insomnia [Unknown]
  - Back pain [Unknown]
  - Musculoskeletal pain [Unknown]
  - Treatment failure [Unknown]
  - Condition aggravated [Unknown]
